FAERS Safety Report 19011504 (Version 1)
Quarter: 2021Q1

REPORT INFORMATION
  Report Type: Spontaneous
  Country: US (occurrence: US)
  Receive Date: 20210315
  Receipt Date: 20210315
  Transmission Date: 20210420
  Serious: Yes (Other)
  Sender: FDA-Public Use
  Company Number: None

PATIENT
  Age: 27 Year
  Sex: Female
  Weight: 59.88 kg

DRUGS (2)
  1. MULTIVITAMIN [Concomitant]
     Active Substance: VITAMINS
  2. KYLEENA [Suspect]
     Active Substance: LEVONORGESTREL
     Dates: start: 20200619, end: 20210218

REACTIONS (8)
  - Vaginal haemorrhage [None]
  - Complication of device removal [None]
  - Menorrhagia [None]
  - Abortion spontaneous [None]
  - Embedded device [None]
  - Abdominal pain lower [None]
  - Pregnancy with contraceptive device [None]
  - Malaise [None]

NARRATIVE: CASE EVENT DATE: 20210211
